FAERS Safety Report 6045697-8 (Version None)
Quarter: 2009Q1

REPORT INFORMATION
  Report Type: 
  Country: None (occurrence: None)
  Receive Date: 20090121
  Receipt Date: 20090116
  Transmission Date: 20090719
  Serious: Yes (Other)
  Sender: FDA-Public Use
  Company Number: JP-SANOFI-SYNTHELABO-A01200801594

PATIENT
  Sex: Female
  Weight: 72 kg

DRUGS (5)
  1. NORVASC [Concomitant]
     Route: 065
  2. OLMETEC [Concomitant]
     Route: 065
  3. LIPITOR [Concomitant]
     Route: 048
     Dates: start: 20070811
  4. COVERSYL [Concomitant]
     Route: 048
     Dates: start: 20070811
  5. PLAVIX [Suspect]
     Route: 048
     Dates: start: 20070811, end: 20070910

REACTIONS (1)
  - HEPATIC FUNCTION ABNORMAL [None]
